FAERS Safety Report 21535078 (Version 1)
Quarter: 2022Q4

REPORT INFORMATION
  Report Type: Spontaneous
  Country: GB (occurrence: GB)
  Receive Date: 20221101
  Receipt Date: 20221101
  Transmission Date: 20230113
  Serious: Yes (Hospitalization, Other)
  Sender: FDA-Public Use
  Company Number: GB-ROCHE-1893714

PATIENT
  Age: 60 Year
  Sex: Female

DRUGS (15)
  1. TRASTUZUMAB [Suspect]
     Active Substance: TRASTUZUMAB
     Indication: Breast cancer metastatic
     Dosage: 588 MILLIGRAM(LOADING DOSE)
     Route: 042
     Dates: start: 20161129, end: 20161129
  2. TRASTUZUMAB [Suspect]
     Active Substance: TRASTUZUMAB
     Dosage: 420 MILLIGRAM, Q3WK (MAINTAINACE DOSE)
     Route: 042
     Dates: start: 20161220
  3. PERTUZUMAB [Suspect]
     Active Substance: PERTUZUMAB
     Indication: Breast cancer metastatic
     Dosage: 420 MILLIGRAM, Q3WK
     Route: 040
     Dates: start: 20161220, end: 20171107
  4. PERTUZUMAB [Suspect]
     Active Substance: PERTUZUMAB
     Dosage: 588 MILLIGRAM(LOADING DOSE)
     Route: 040
     Dates: start: 20161129, end: 20161129
  5. DOCETAXEL [Suspect]
     Active Substance: DOCETAXEL
     Indication: Breast cancer metastatic
     Dosage: 96 MILLIGRAM2 CYCLE(PLANNED NUMBER OF CYCLE WAS COMPLETED)
     Route: 040
     Dates: start: 20170228, end: 20170321
  6. DOCETAXEL [Suspect]
     Active Substance: DOCETAXEL
     Dosage: 140 MILLIGRAM, Q3WK
     Route: 040
     Dates: start: 20161130, end: 20200131
  7. DOCETAXEL [Suspect]
     Active Substance: DOCETAXEL
     Dosage: 140 MILLIGRAM, Q3WK(6 CYCLE, 4 CYCLE  )
     Route: 040
     Dates: start: 20161130, end: 20170131
  8. DOCETAXEL [Suspect]
     Active Substance: DOCETAXEL
     Dosage: 96 MILLIGRAM2 CYCLE(PLANNED NUMBER OF CYCLE WAS COMPLETED)
     Route: 040
     Dates: start: 20170228, end: 20200321
  9. ADO-TRASTUZUMAB EMTANSINE [Suspect]
     Active Substance: ADO-TRASTUZUMAB EMTANSINE
     Indication: Breast cancer metastatic
     Dosage: 260 MILLIGRAM, Q3WK
     Route: 042
     Dates: start: 20171127, end: 20180626
  10. ADO-TRASTUZUMAB EMTANSINE [Suspect]
     Active Substance: ADO-TRASTUZUMAB EMTANSINE
     Dosage: 180 MILLIGRAM, Q3WK
     Route: 040
     Dates: start: 20200312
  11. ADO-TRASTUZUMAB EMTANSINE [Suspect]
     Active Substance: ADO-TRASTUZUMAB EMTANSINE
     Dosage: 180 MILLIGRAM
     Route: 040
     Dates: start: 20220530
  12. ADO-TRASTUZUMAB EMTANSINE [Suspect]
     Active Substance: ADO-TRASTUZUMAB EMTANSINE
     Dosage: 200 MILLIGRAM, Q3WK
     Route: 058
     Dates: start: 20180918
  13. CALCIUM CARBONATE\CHOLECALCIFEROL [Concomitant]
     Active Substance: CALCIUM CARBONATE\CHOLECALCIFEROL
     Dosage: 1.5 GRAM, QD
     Route: 048
  14. XGEVA [Concomitant]
     Active Substance: DENOSUMAB
     Dosage: 120 MILLIGRAM
     Route: 058
     Dates: start: 20161129
  15. OMEPRAZOLE [Concomitant]
     Active Substance: OMEPRAZOLE
     Indication: Gastrooesophageal reflux disease
     Dosage: 40 MILLIGRAM, QD
     Route: 048
     Dates: start: 20170207

REACTIONS (2)
  - Hepatic fibrosis [Not Recovered/Not Resolved]
  - Off label use [Unknown]

NARRATIVE: CASE EVENT DATE: 20220518
